FAERS Safety Report 4498851-0 (Version None)
Quarter: 2004Q3

REPORT INFORMATION
  Report Type: 
  Country: None (occurrence: None)
  Receive Date: 20040927
  Receipt Date: 20040715
  Transmission Date: 20050211
  Serious: No
  Sender: FDA-Public Use
  Company Number: USA040670726

PATIENT
  Age: 5 Year
  Sex: Female

DRUGS (1)
  1. STRATTERA [Suspect]
     Indication: ATTENTION DEFICIT/HYPERACTIVITY DISORDER
     Dosage: 25 MG AT BEDTIME
     Dates: start: 20040601

REACTIONS (5)
  - FEELING ABNORMAL [None]
  - MIDDLE INSOMNIA [None]
  - NIGHTMARE [None]
  - SLEEP WALKING [None]
  - STARING [None]
